FAERS Safety Report 7637027-2 (Version None)
Quarter: 2011Q3

REPORT INFORMATION
  Report Type: 
  Country: None (occurrence: None)
  Receive Date: 20110726
  Receipt Date: 20110720
  Transmission Date: 20111222
  Serious: Yes (Death, Hospitalization)
  Sender: FDA-Public Use
  Company Number: ES-PFIZER INC-2011019241

PATIENT
  Age: 49 Year
  Sex: Female

DRUGS (12)
  1. MIDAZOLAM HCL [Suspect]
  2. METOCLOPRAMIDE HCL [Suspect]
  3. METHYLPREDNISOLONE SODIUM SUCCINATE [Suspect]
  4. MAGNESIUM SULFATE [Suspect]
  5. OMEPRAZOLE [Suspect]
  6. DOBUTAMINE [Suspect]
  7. REMIFENTANIL [Suspect]
  8. MEROPENEM [Suspect]
  9. NOREPINEPHRINE BITARTRATE [Suspect]
  10. TIGECYCLINE [Suspect]
  11. VORICONAZOLE [Suspect]
  12. INSULIN RAPID ^PARANOVA^ [Suspect]

REACTIONS (3)
  - MULTI-ORGAN FAILURE [None]
  - ACUTE MYOCARDIAL INFARCTION [None]
  - CARDIOGENIC SHOCK [None]
